FAERS Safety Report 6495097-1 (Version None)
Quarter: 2009Q4

REPORT INFORMATION
  Report Type: 
  Country: None (occurrence: None)
  Receive Date: 20091214
  Receipt Date: 20090430
  Transmission Date: 20100525
  Serious: No
  Sender: FDA-Public Use
  Company Number: US-BRISTOL-MYERS SQUIBB COMPANY-14607139

PATIENT
  Age: 33 Year
  Sex: Male

DRUGS (3)
  1. ABILIFY [Suspect]
     Indication: SCHIZOPHRENIA
     Dosage: STARTED WITH 20MG DOSE, THEN INCREASED TO 25 MG
     Dates: start: 20080101
  2. COGENTIN [Concomitant]
  3. PERPHENAZINE [Concomitant]

REACTIONS (1)
  - RASH [None]
